FAERS Safety Report 5332235-8 (Version None)
Quarter: 2007Q2

REPORT INFORMATION
  Report Type: 
  Country: None (occurrence: None)
  Receive Date: 20070523
  Receipt Date: 20070515
  Transmission Date: 20071010
  Serious: Yes (Other)
  Sender: FDA-Public Use
  Company Number: CA-JNJFOC-20061202932

PATIENT
  Age: 51 Year
  Sex: Female

DRUGS (4)
  1. REMICADE [Suspect]
     Dosage: 100 MG/VIAL, 4 VIALS
     Route: 042
  2. REMICADE [Suspect]
     Indication: PSORIASIS
     Dosage: 100 MG/VIAL, 4 VIALS
     Route: 042
  3. REMICADE [Suspect]
     Indication: RHEUMATOID ARTHRITIS
     Dosage: 100 MG/VIAL, 4 VIALS
     Route: 042
  4. METHOTREXATE [Concomitant]
     Route: 048

REACTIONS (3)
  - DYSPHAGIA [None]
  - RASH [None]
  - SKIN EXFOLIATION [None]
